FAERS Safety Report 4214534-6 (Version None)
Quarter: 2004Q1

REPORT INFORMATION
  Report Type: 
  Country: None (occurrence: None)
  Receive Date: 20031017
  Receipt Date: 20031010
  Transmission Date: 20041129
  Serious: Yes (Death)
  Sender: FDA-Public Use
  Company Number: USA-2003-0010243

PATIENT
  Age: 45 Year
  Sex: Female

DRUGS (6)
  1. OXYCODONE HCL [Suspect]
  2. HYDROCODONE BITARTRATE (SIMILAR TO IND 59,175)(HYDROCODONE BITARTRATE, [Suspect]
  3. ANALGESICS ( ) [Concomitant]
  4. ANTIDEPRESSANTS ( ) [Concomitant]
  5. TRANQUILIZERS ( ) [Concomitant]
  6. HYPNOTIC ( ) [Concomitant]

REACTIONS (3)
  - DRUG TOXICITY [None]
  - MULTIPLE DRUG OVERDOSE ACCIDENTAL [None]
  - PNEUMONIA [None]
